FAERS Safety Report 12983489 (Version 1)
Quarter: 2016Q4

REPORT INFORMATION
  Report Type: Not Available
  Country: US (occurrence: US)
  Receive Date: 20161129
  Receipt Date: 20161129
  Transmission Date: 20170207
  Serious: Yes (Hospitalization)
  Sender: FDA-Public Use
  Company Number: US-ANIPHARMA-2016-US-009624

PATIENT
  Age: 33 Year
  Sex: Male

DRUGS (1)
  1. RISPERIDONE (NON-SPECIFIC) [Suspect]
     Active Substance: RISPERIDONE
     Dosage: UNKNOWN
     Route: 065

REACTIONS (4)
  - Pyelonephritis [Unknown]
  - Colectomy [Unknown]
  - Colitis ischaemic [Unknown]
  - Faecaloma [Unknown]
